FAERS Safety Report 5676324-7 (Version None)
Quarter: 2008Q1

REPORT INFORMATION
  Report Type: 
  Country: None (occurrence: None)
  Receive Date: 20080321
  Receipt Date: 20080312
  Transmission Date: 20080703
  Serious: Yes (Disabling, Other)
  Sender: FDA-Public Use
  Company Number: GB-PFIZER INC-2008017799

PATIENT
  Sex: Female

DRUGS (5)
  1. AROMASIN [Suspect]
     Indication: BREAST CANCER
     Route: 048
     Dates: start: 20070201, end: 20080201
  2. LANSOPRAZOLE [Concomitant]
  3. OXYTETRACYCLINE [Concomitant]
  4. SYMBICORT [Concomitant]
     Route: 055
  5. BRICANYL [Concomitant]
     Route: 055

REACTIONS (3)
  - BLOOD CREATINE PHOSPHOKINASE INCREASED [None]
  - MYALGIA [None]
  - MYOSITIS [None]
